FAERS Safety Report 5256683-X (Version None)
Quarter: 2007Q1

REPORT INFORMATION
  Report Type: 
  Country: None (occurrence: None)
  Receive Date: 20070306
  Receipt Date: 20070222
  Transmission Date: 20070707
  Serious: Yes (Hospitalization)
  Sender: FDA-Public Use
  Company Number: JP-PFIZER INC-2007006526

PATIENT
  Sex: Male
  Weight: 48 kg

DRUGS (2)
  1. UNASYN [Suspect]
     Indication: LUNG INFECTION
     Dosage: DAILY DOSE:6MG-FREQ:FREQUENCY: BID
     Route: 042
     Dates: start: 20070106, end: 20070116
  2. DALACIN-S [Concomitant]
     Dosage: DAILY DOSE:1.2GRAM
     Route: 042
     Dates: start: 20061210, end: 20070105

REACTIONS (2)
  - EOSINOPHIL COUNT INCREASED [None]
  - PLEURAL EFFUSION [None]
